FAERS Safety Report 8935931 (Version 1)
Quarter: 2012Q4

REPORT INFORMATION
  Report Type: 
  Country: US (occurrence: US)
  Receive Date: 20121130
  Receipt Date: 20121130
  Transmission Date: 20130627
  Serious: No
  Sender: FDA-Public Use
  Company Number: US-ABBOTT-12P-163-0993511-00

PATIENT
  Age: 50 Year
  Sex: Male
  Weight: 90.8 kg

DRUGS (2)
  1. ANDROGEL [Suspect]
     Indication: BLOOD TESTOSTERONE DECREASED
     Dosage: 2 pumps per day
     Dates: start: 2012, end: 2012
  2. ANDROGEL [Suspect]
     Dosage: 1 + 1/2 pump per day
     Dates: start: 2012

REACTIONS (5)
  - Blood testosterone increased [Unknown]
  - Blood testosterone abnormal [Not Recovered/Not Resolved]
  - Blood testosterone decreased [Unknown]
  - Red blood cell count increased [Unknown]
  - Drug ineffective [Not Recovered/Not Resolved]
